FAERS Safety Report 7742227-7 (Version None)
Quarter: 2011Q3

REPORT INFORMATION
  Report Type: 
  Country: None (occurrence: None)
  Receive Date: 20110912
  Receipt Date: 20110817
  Transmission Date: 20111222
  Serious: No
  Sender: FDA-Public Use
  Company Number: US-ROXANE LABORATORIES, INC.-2011-RO-00760RO

PATIENT
  Sex: Female
  Weight: 64 kg

DRUGS (5)
  1. AMLODIPINE [Concomitant]
     Indication: HYPERTENSION
     Dosage: 5 MG
  2. POTASSIUM CHLORIDE [Concomitant]
  3. PENTASA [Concomitant]
     Indication: CROHN'S DISEASE
     Dosage: 4000 MG
     Route: 048
  4. MERCAPTOPURINE [Suspect]
     Indication: CROHN'S DISEASE
     Dosage: 75 MG
     Route: 048
     Dates: start: 20000101
  5. FOSAMAX [Concomitant]
     Indication: OSTEOPENIA

REACTIONS (1)
  - SQUAMOUS CELL CARCINOMA [None]
